FAERS Safety Report 9056063 (Version 1)
Quarter: 2013Q1

REPORT INFORMATION
  Report Type: Spontaneous
  Country: BR (occurrence: BR)
  Receive Date: 20130205
  Receipt Date: 20130205
  Transmission Date: 20140127
  Serious: Yes (Other)
  Sender: FDA-Public Use
  Company Number: PHHY2013BR009154

PATIENT
  Sex: Female

DRUGS (1)
  1. FORASEQ [Suspect]
     Dosage: UNK

REACTIONS (6)
  - Osteoarthritis [Unknown]
  - Arthritis [Unknown]
  - Back pain [Unknown]
  - Pelvic pain [Unknown]
  - Abasia [Unknown]
  - Arthralgia [Unknown]
